FAERS Safety Report 11362390 (Version 1)
Quarter: 2015Q3

REPORT INFORMATION
  Report Type: Spontaneous
  Country: US (occurrence: US)
  Receive Date: 20150810
  Receipt Date: 20150810
  Transmission Date: 20151125
  Serious: No
  Sender: FDA-Public Use
  Company Number: US-BAYER-2015-389818

PATIENT
  Age: 66 Year
  Sex: Female
  Weight: 51 kg

DRUGS (7)
  1. NIFEDIPINE. [Concomitant]
     Active Substance: NIFEDIPINE
  2. ASPIRIN. [Concomitant]
     Active Substance: ASPIRIN
  3. DAILY VITAMINS [Concomitant]
  4. ALEVE [Suspect]
     Active Substance: NAPROXEN SODIUM
     Dosage: 5 DF, 3 AT A TIME AND MAYBE 2
     Route: 048
  5. ONE A DAY WOMEN^S [Suspect]
     Active Substance: MINERALS\VITAMINS
     Dosage: 1 DF, FOR A LITTLE MORE THAN A WEEK TOO
     Route: 048
     Dates: start: 201507
  6. ATORVASTATIN [Concomitant]
     Active Substance: ATORVASTATIN
  7. GLUCOSAMINE [Concomitant]
     Active Substance: GLUCOSAMINE

REACTIONS (3)
  - Feeling abnormal [None]
  - Product use issue [None]
  - Nausea [Not Recovered/Not Resolved]

NARRATIVE: CASE EVENT DATE: 20150726
